FAERS Safety Report 7041711-1 (Version None)
Quarter: 2010Q4

REPORT INFORMATION
  Report Type: 
  Country: None (occurrence: None)
  Receive Date: 20101013
  Receipt Date: 20091102
  Transmission Date: 20110411
  Serious: No
  Sender: FDA-Public Use
  Company Number: US-ASTRAZENECA-2009SE24047

PATIENT
  Age: 962 Month
  Sex: Female
  Weight: 63.5 kg

DRUGS (2)
  1. SYMBICORT [Suspect]
     Dosage: TOTAL DAILY DOSE: 320 MICROGRAMS, 1 PUFF
     Route: 055
     Dates: start: 20090801
  2. SYMBICORT [Suspect]
     Dosage: TOTAL DAILY DOSE: 320 MICROGRAMS, 2  PUFFS
     Route: 055
     Dates: start: 20090801

REACTIONS (2)
  - INTENTIONAL DRUG MISUSE [None]
  - MACULAR DEGENERATION [None]
